FAERS Safety Report 20043702 (Version 2)
Quarter: 2021Q4

REPORT INFORMATION
  Report Type: Report from Study
  Country: US (occurrence: US)
  Receive Date: 20211108
  Receipt Date: 20211124
  Transmission Date: 20220303
  Serious: Yes (Other)
  Sender: FDA-Public Use
  Company Number: ALC2021US006011

PATIENT
  Sex: Female

DRUGS (2)
  1. SIMBRINZA [Suspect]
     Active Substance: BRIMONIDINE TARTRATE\BRINZOLAMIDE
     Indication: Product used for unknown indication
     Dosage: UNK (STRENGTH 0.2% 1%))
     Route: 065
  2. TRAVATAN Z [Suspect]
     Active Substance: TRAVOPROST
     Indication: Product used for unknown indication
     Dosage: UNK
     Route: 047

REACTIONS (1)
  - Blindness [Unknown]
